FAERS Safety Report 4868305-8 (Version None)
Quarter: 2005Q4

REPORT INFORMATION
  Report Type: 
  Country: None (occurrence: None)
  Receive Date: 20051229
  Receipt Date: 20051220
  Transmission Date: 20060501
  Serious: Yes (Hospitalization)
  Sender: FDA-Public Use
  Company Number: US-MERCK-0512USA03727

PATIENT
  Sex: Female

DRUGS (8)
  1. HYZAAR [Suspect]
     Route: 048
  2. CARBIDOPA [Suspect]
     Route: 065
  3. PLAVIX [Suspect]
     Route: 065
  4. ASPIRIN [Suspect]
     Route: 065
  5. REQUIP [Suspect]
     Route: 065
  6. LABETALOL HYDROCHLORIDE [Suspect]
     Route: 065
  7. ZOLOFT [Suspect]
     Route: 065
  8. DILTIAZEM HYDROCHLORIDE [Suspect]
     Route: 065

REACTIONS (2)
  - HIP FRACTURE [None]
  - OSTEOARTHRITIS [None]
